FAERS Safety Report 18253555 (Version 5)
Quarter: 2021Q1

REPORT INFORMATION
  Report Type: Spontaneous
  Country: FR (occurrence: FR)
  Receive Date: 20200910
  Receipt Date: 20210108
  Transmission Date: 20210419
  Serious: Yes (Death, Life-Threatening, Hospitalization)
  Sender: FDA-Public Use
  Company Number: FR-ALLERGAN-2034078US

PATIENT
  Sex: Male
  Weight: 81 kg

DRUGS (6)
  1. PANOBINOSTAT [Suspect]
     Active Substance: PANOBINOSTAT
     Dosage: UNK
     Dates: start: 20200713
  2. VELCADE [Suspect]
     Active Substance: BORTEZOMIB
     Dosage: UNK
     Dates: start: 20200713
  3. DEX UNK [Suspect]
     Active Substance: UNSPECIFIED INGREDIENT
     Dosage: UNK
     Route: 065
     Dates: start: 20200713
  4. PANOBINOSTAT [Suspect]
     Active Substance: PANOBINOSTAT
     Indication: PRODUCT USED FOR UNKNOWN INDICATION
     Dosage: UNK
     Dates: start: 20200803
  5. VELCADE [Suspect]
     Active Substance: BORTEZOMIB
     Indication: PRODUCT USED FOR UNKNOWN INDICATION
     Dosage: UNK
     Dates: start: 20200803
  6. DEX UNK [Suspect]
     Active Substance: UNSPECIFIED INGREDIENT
     Indication: PRODUCT USED FOR UNKNOWN INDICATION
     Dosage: UNK
     Route: 065
     Dates: start: 20200803

REACTIONS (2)
  - Gastrointestinal haemorrhage [Fatal]
  - Confusional state [Fatal]

NARRATIVE: CASE EVENT DATE: 20200805
